FAERS Safety Report 23314072 (Version 1)
Quarter: 2023Q4

REPORT INFORMATION
  Report Type: Spontaneous
  Country: AU (occurrence: AU)
  Receive Date: 20231219
  Receipt Date: 20231219
  Transmission Date: 20240110
  Serious: Yes (Hospitalization, Other)
  Sender: FDA-Public Use
  Company Number: AU-CAMURUS AB-AU-CAM-23-00853

PATIENT
  Age: 42 Year
  Sex: Female

DRUGS (6)
  1. BUPRENORPHINE [Suspect]
     Active Substance: BUPRENORPHINE
     Indication: Product used for unknown indication
     Dosage: 8 MILLIGRAM, WEEKLY
     Route: 065
     Dates: start: 20231113
  2. OXYCODONE HYDROCHLORIDE [Suspect]
     Active Substance: OXYCODONE HYDROCHLORIDE
     Indication: Back pain
     Dosage: 2.5-10 MILLIGRAM
     Route: 065
  3. DIAZEPAM [Suspect]
     Active Substance: DIAZEPAM
     Indication: Product used for unknown indication
     Dosage: 5 MILLIGRAM, TAKEN AT NIGHT TIME PRN
     Route: 065
  4. ACETAMINOPHEN\CODEINE PHOSPHATE [Suspect]
     Active Substance: ACETAMINOPHEN\CODEINE PHOSPHATE
     Indication: Product used for unknown indication
     Dosage: UNK, QD
     Route: 065
  5. NALOXONE HYDROCHLORIDE\OXYCODONE HYDROCHLORIDE [Suspect]
     Active Substance: NALOXONE HYDROCHLORIDE\OXYCODONE HYDROCHLORIDE
     Indication: Product used for unknown indication
     Dosage: UNK
     Route: 065
  6. GABAPENTIN [Suspect]
     Active Substance: GABAPENTIN
     Indication: Product used for unknown indication
     Dosage: UNK
     Route: 065

REACTIONS (5)
  - Pneumonia [Unknown]
  - Respiratory depression [Recovering/Resolving]
  - Pruritus [Unknown]
  - Sedation [Recovered/Resolved]
  - Labelled drug-drug interaction issue [Unknown]

NARRATIVE: CASE EVENT DATE: 20231101
